FAERS Safety Report 4747931-0 (Version None)
Quarter: 2005Q3

REPORT INFORMATION
  Report Type: 
  Country: None (occurrence: None)
  Receive Date: 20050816
  Receipt Date: 20050803
  Transmission Date: 20060218
  Serious: Yes (Hospitalization)
  Sender: FDA-Public Use
  Company Number: S04-USA-06296-01

PATIENT
  Age: 30 Year
  Sex: Female
  Weight: 46.2669 kg

DRUGS (6)
  1. LEXAPRO [Suspect]
     Indication: DEPRESSION
     Dosage: 50 MG QD PO
     Route: 048
     Dates: start: 20040701, end: 20040920
  2. LEXAPRO [Suspect]
     Indication: DEPRESSION
     Dosage: 40 MG QD PO
     Route: 048
     Dates: start: 20040921, end: 20040101
  3. LEXAPRO [Suspect]
     Indication: DEPRESSION
     Dosage: 10 MG QD PO
     Route: 048
     Dates: start: 20040101, end: 20041005
  4. LEXAPRO [Suspect]
     Indication: DEPRESSION
     Dosage: 40 MG QD PO
     Route: 048
     Dates: start: 20030901, end: 20040701
  5. CLARITIN [Concomitant]
  6. NATELLE [Concomitant]

REACTIONS (10)
  - CAESAREAN SECTION [None]
  - DIZZINESS [None]
  - DRUG EXPOSURE DURING PREGNANCY [None]
  - DRUG INEFFECTIVE [None]
  - NAUSEA [None]
  - PAIN [None]
  - PREGNANCY [None]
  - PREMATURE LABOUR [None]
  - PROCEDURAL PAIN [None]
  - VOMITING [None]
